FAERS Safety Report 25721304 (Version 2)
Quarter: 2025Q4

REPORT INFORMATION
  Report Type: Spontaneous
  Country: EU (occurrence: EU)
  Receive Date: 20250825
  Receipt Date: 20251029
  Transmission Date: 20260118
  Serious: Yes (Hospitalization, Other)
  Sender: MYLAN
  Company Number: EU-BRISTOL-MYERS SQUIBB COMPANY-2025-107945

PATIENT
  Age: 57 Year
  Sex: Male

DRUGS (68)
  1. POMALIDOMIDE [Suspect]
     Active Substance: POMALIDOMIDE
     Indication: Plasma cell myeloma
     Dosage: UNK
  2. POMALIDOMIDE [Suspect]
     Active Substance: POMALIDOMIDE
     Dosage: UNK
     Route: 065
  3. POMALIDOMIDE [Suspect]
     Active Substance: POMALIDOMIDE
     Dosage: UNK
     Route: 065
  4. POMALIDOMIDE [Suspect]
     Active Substance: POMALIDOMIDE
     Dosage: UNK
  5. ELOTUZUMAB [Suspect]
     Active Substance: ELOTUZUMAB
     Indication: Plasma cell myeloma
     Dosage: UNK
  6. ELOTUZUMAB [Suspect]
     Active Substance: ELOTUZUMAB
     Dosage: UNK
     Route: 065
  7. ELOTUZUMAB [Suspect]
     Active Substance: ELOTUZUMAB
     Dosage: UNK
     Route: 065
  8. ELOTUZUMAB [Suspect]
     Active Substance: ELOTUZUMAB
     Dosage: UNK
  9. DEXAMETHASONE [Suspect]
     Active Substance: DEXAMETHASONE
     Indication: Plasma cell myeloma
     Dosage: UNK
  10. DEXAMETHASONE [Suspect]
     Active Substance: DEXAMETHASONE
     Dosage: UNK
     Route: 065
  11. DEXAMETHASONE [Suspect]
     Active Substance: DEXAMETHASONE
     Dosage: UNK
     Route: 065
  12. DEXAMETHASONE [Suspect]
     Active Substance: DEXAMETHASONE
     Dosage: UNK
  13. Pantrozole [Concomitant]
     Indication: Product used for unknown indication
     Dosage: 40 MILLIGRAM, QD
  14. Pantrozole [Concomitant]
     Dosage: 40 MILLIGRAM, QD
     Route: 065
  15. Pantrozole [Concomitant]
     Dosage: 40 MILLIGRAM, QD
     Route: 065
  16. Pantrozole [Concomitant]
     Dosage: 40 MILLIGRAM, QD
  17. COTRIMOXAZOLE [Concomitant]
     Active Substance: SULFAMETHOXAZOLE\TRIMETHOPRIM
     Indication: Product used for unknown indication
     Dosage: 960 MILLIGRAM (1-0-0 (MON-WED-FRI))
  18. COTRIMOXAZOLE [Concomitant]
     Active Substance: SULFAMETHOXAZOLE\TRIMETHOPRIM
     Dosage: 960 MILLIGRAM (1-0-0 (MON-WED-FRI))
     Route: 065
  19. COTRIMOXAZOLE [Concomitant]
     Active Substance: SULFAMETHOXAZOLE\TRIMETHOPRIM
     Dosage: 960 MILLIGRAM (1-0-0 (MON-WED-FRI))
     Route: 065
  20. COTRIMOXAZOLE [Concomitant]
     Active Substance: SULFAMETHOXAZOLE\TRIMETHOPRIM
     Dosage: 960 MILLIGRAM (1-0-0 (MON-WED-FRI))
  21. VALTREX [Concomitant]
     Active Substance: VALACYCLOVIR HYDROCHLORIDE
     Indication: Product used for unknown indication
     Dosage: 500 MILLIGRAM, BID (0.5 DAY)
  22. VALTREX [Concomitant]
     Active Substance: VALACYCLOVIR HYDROCHLORIDE
     Dosage: 500 MILLIGRAM, BID (0.5 DAY)
     Route: 065
  23. VALTREX [Concomitant]
     Active Substance: VALACYCLOVIR HYDROCHLORIDE
     Dosage: 500 MILLIGRAM, BID (0.5 DAY)
     Route: 065
  24. VALTREX [Concomitant]
     Active Substance: VALACYCLOVIR HYDROCHLORIDE
     Dosage: 500 MILLIGRAM, BID (0.5 DAY)
  25. CALCIUM [Concomitant]
     Active Substance: CALCIUM
     Indication: Product used for unknown indication
     Dosage: 500 MILLIGRAM, QD
  26. CALCIUM [Concomitant]
     Active Substance: CALCIUM
     Dosage: 500 MILLIGRAM, QD
     Route: 065
  27. CALCIUM [Concomitant]
     Active Substance: CALCIUM
     Dosage: 500 MILLIGRAM, QD
     Route: 065
  28. CALCIUM [Concomitant]
     Active Substance: CALCIUM
     Dosage: 500 MILLIGRAM, QD
  29. CHOLECALCIFEROL [Concomitant]
     Active Substance: CHOLECALCIFEROL
     Indication: Product used for unknown indication
     Dosage: 20000 INTERNATIONAL UNIT, QW
  30. CHOLECALCIFEROL [Concomitant]
     Active Substance: CHOLECALCIFEROL
     Dosage: 20000 INTERNATIONAL UNIT, QW
     Route: 065
  31. CHOLECALCIFEROL [Concomitant]
     Active Substance: CHOLECALCIFEROL
     Dosage: 20000 INTERNATIONAL UNIT, QW
     Route: 065
  32. CHOLECALCIFEROL [Concomitant]
     Active Substance: CHOLECALCIFEROL
     Dosage: 20000 INTERNATIONAL UNIT, QW
  33. TAMSULOSIN [Concomitant]
     Active Substance: TAMSULOSIN
     Indication: Product used for unknown indication
     Dosage: 0.4 MILLIGRAM, QD
  34. TAMSULOSIN [Concomitant]
     Active Substance: TAMSULOSIN
     Dosage: 0.4 MILLIGRAM, QD
     Route: 065
  35. TAMSULOSIN [Concomitant]
     Active Substance: TAMSULOSIN
     Dosage: 0.4 MILLIGRAM, QD
     Route: 065
  36. TAMSULOSIN [Concomitant]
     Active Substance: TAMSULOSIN
     Dosage: 0.4 MILLIGRAM, QD
  37. POSACONAZOLE [Concomitant]
     Active Substance: POSACONAZOLE
     Indication: Antifungal prophylaxis
     Dosage: 100 MILLIGRAM, QD (0-3-0)
  38. POSACONAZOLE [Concomitant]
     Active Substance: POSACONAZOLE
     Dosage: 100 MILLIGRAM, QD (0-3-0)
     Route: 065
  39. POSACONAZOLE [Concomitant]
     Active Substance: POSACONAZOLE
     Dosage: 100 MILLIGRAM, QD (0-3-0)
     Route: 065
  40. POSACONAZOLE [Concomitant]
     Active Substance: POSACONAZOLE
     Dosage: 100 MILLIGRAM, QD (0-3-0)
  41. ZOFRAN [Concomitant]
     Active Substance: ONDANSETRON HYDROCHLORIDE
     Indication: Product used for unknown indication
     Dosage: 4 MILLIGRAM (ONE TIME 1 HOUR BEFORE INAQOVI, IF NEEDED 2X DAILY)
  42. ZOFRAN [Concomitant]
     Active Substance: ONDANSETRON HYDROCHLORIDE
     Dosage: 4 MILLIGRAM (ONE TIME 1 HOUR BEFORE INAQOVI, IF NEEDED 2X DAILY)
     Route: 065
  43. ZOFRAN [Concomitant]
     Active Substance: ONDANSETRON HYDROCHLORIDE
     Dosage: 4 MILLIGRAM (ONE TIME 1 HOUR BEFORE INAQOVI, IF NEEDED 2X DAILY)
     Route: 065
  44. ZOFRAN [Concomitant]
     Active Substance: ONDANSETRON HYDROCHLORIDE
     Dosage: 4 MILLIGRAM (ONE TIME 1 HOUR BEFORE INAQOVI, IF NEEDED 2X DAILY)
  45. MOXIFLOXACIN [Concomitant]
     Active Substance: MOXIFLOXACIN
     Indication: Pyrexia
     Dosage: UNK, PRN (IF NEEDED FOR FEVER)
  46. MOXIFLOXACIN [Concomitant]
     Active Substance: MOXIFLOXACIN
     Dosage: UNK, PRN (IF NEEDED FOR FEVER)
     Route: 065
  47. MOXIFLOXACIN [Concomitant]
     Active Substance: MOXIFLOXACIN
     Dosage: UNK, PRN (IF NEEDED FOR FEVER)
     Route: 065
  48. MOXIFLOXACIN [Concomitant]
     Active Substance: MOXIFLOXACIN
     Dosage: UNK, PRN (IF NEEDED FOR FEVER)
  49. MCP [Concomitant]
     Active Substance: METOCLOPRAMIDE HYDROCHLORIDE
     Indication: Nausea
     Dosage: 10 MILLIGRAM, TID (3X DAILY IF NEEDED DUE TO NAUSEA)
  50. MCP [Concomitant]
     Active Substance: METOCLOPRAMIDE HYDROCHLORIDE
     Dosage: 10 MILLIGRAM, TID (3X DAILY IF NEEDED DUE TO NAUSEA)
     Route: 065
  51. MCP [Concomitant]
     Active Substance: METOCLOPRAMIDE HYDROCHLORIDE
     Dosage: 10 MILLIGRAM, TID (3X DAILY IF NEEDED DUE TO NAUSEA)
     Route: 065
  52. MCP [Concomitant]
     Active Substance: METOCLOPRAMIDE HYDROCHLORIDE
     Dosage: 10 MILLIGRAM, TID (3X DAILY IF NEEDED DUE TO NAUSEA)
  53. TALQUETAMAB [Concomitant]
     Active Substance: TALQUETAMAB
     Indication: Product used for unknown indication
     Dosage: UNK
  54. TALQUETAMAB [Concomitant]
     Active Substance: TALQUETAMAB
     Dosage: UNK
  55. TALQUETAMAB [Concomitant]
     Active Substance: TALQUETAMAB
     Dosage: UNK
     Route: 065
  56. TALQUETAMAB [Concomitant]
     Active Substance: TALQUETAMAB
     Dosage: UNK
     Route: 065
  57. TALQUETAMAB [Concomitant]
     Active Substance: TALQUETAMAB
     Dosage: UNK
  58. TALQUETAMAB [Concomitant]
     Active Substance: TALQUETAMAB
     Dosage: UNK
  59. TALQUETAMAB [Concomitant]
     Active Substance: TALQUETAMAB
     Dosage: UNK
     Route: 065
  60. TALQUETAMAB [Concomitant]
     Active Substance: TALQUETAMAB
     Dosage: UNK
     Route: 065
  61. CEDAZURIDINE\DECITABINE [Concomitant]
     Active Substance: CEDAZURIDINE\DECITABINE
     Indication: Product used for unknown indication
     Dosage: UNK (35MG/100MG (1-0-0 D1-5 18-JUL TO 22-JUL INCLUSIVE THEREAFTER PAUSE , 07/14/C2))
  62. CEDAZURIDINE\DECITABINE [Concomitant]
     Active Substance: CEDAZURIDINE\DECITABINE
     Dosage: UNK (35MG/100MG (1-0-0 D1-5 18-JUL TO 22-JUL INCLUSIVE THEREAFTER PAUSE , 07/14/C2))
     Route: 065
  63. CEDAZURIDINE\DECITABINE [Concomitant]
     Active Substance: CEDAZURIDINE\DECITABINE
     Dosage: UNK (35MG/100MG (1-0-0 D1-5 18-JUL TO 22-JUL INCLUSIVE THEREAFTER PAUSE , 07/14/C2))
     Route: 065
  64. CEDAZURIDINE\DECITABINE [Concomitant]
     Active Substance: CEDAZURIDINE\DECITABINE
     Dosage: UNK (35MG/100MG (1-0-0 D1-5 18-JUL TO 22-JUL INCLUSIVE THEREAFTER PAUSE , 07/14/C2))
  65. ABECMA [Concomitant]
     Active Substance: IDECABTAGENE VICLEUCEL
     Indication: Product used for unknown indication
     Dosage: UNK
  66. ABECMA [Concomitant]
     Active Substance: IDECABTAGENE VICLEUCEL
     Dosage: UNK
     Route: 065
  67. ABECMA [Concomitant]
     Active Substance: IDECABTAGENE VICLEUCEL
     Dosage: UNK
     Route: 065
  68. ABECMA [Concomitant]
     Active Substance: IDECABTAGENE VICLEUCEL
     Dosage: UNK

REACTIONS (4)
  - Plasma cell myeloma [Not Recovered/Not Resolved]
  - Lumbar vertebral fracture [Not Recovered/Not Resolved]
  - Cervical vertebral fracture [Unknown]
  - Spinal stenosis [Not Recovered/Not Resolved]

NARRATIVE: CASE EVENT DATE: 20240301
